FAERS Safety Report 5010458-5 (Version None)
Quarter: 2006Q2

REPORT INFORMATION
  Report Type: 
  Country: None (occurrence: None)
  Receive Date: 20060525
  Receipt Date: 20060517
  Transmission Date: 20061013
  Serious: Yes (Other)
  Sender: FDA-Public Use
  Company Number: PHBS2006SE07268

PATIENT
  Age: 75 Year
  Sex: Male

DRUGS (4)
  1. AREDIA [Suspect]
     Indication: MULTIPLE MYELOMA
     Route: 042
     Dates: start: 20010401, end: 20020701
  2. ZOMETA [Suspect]
     Indication: MULTIPLE MYELOMA
     Dosage: 4MG/5ML
     Route: 042
     Dates: start: 20020801, end: 20050901
  3. MELPHALAN [Concomitant]
     Dosage: 9 TREATMENTS
     Dates: start: 20020501
  4. PREDNISOLONE [Concomitant]
     Dosage: 9 TREATMENTS
     Dates: start: 20020501

REACTIONS (3)
  - BONE DISORDER [None]
  - OSTEONECROSIS [None]
  - TOOTH DISORDER [None]
